FAERS Safety Report 19803560 (Version 1)
Quarter: 2021Q3

REPORT INFORMATION
  Report Type: Spontaneous
  Country: TN (occurrence: TN)
  Receive Date: 20210908
  Receipt Date: 20210908
  Transmission Date: 20211014
  Serious: Yes (Death, Hospitalization)
  Sender: FDA-Public Use
  Company Number: TN-STRIDES ARCOLAB LIMITED-2021SP027214

PATIENT
  Age: 45 Year
  Sex: Female

DRUGS (7)
  1. PROCARBAZINE [Suspect]
     Active Substance: PROCARBAZINE
     Indication: HODGKIN^S DISEASE
     Dosage: UNK, CYCLICAL, PART OF BEACOPP REGIMEN
     Route: 065
  2. CYCLOPHOSPHAMIDE. [Suspect]
     Active Substance: CYCLOPHOSPHAMIDE
     Indication: HODGKIN^S DISEASE
     Dosage: UNK, CYCLICAL, PART OF BEACOPP REGIMEN
     Route: 065
  3. VINCRISTINE [Suspect]
     Active Substance: VINCRISTINE
     Indication: HODGKIN^S DISEASE
     Dosage: UNK, CYCLICAL, PART OF BEACOPP REGIMEN
     Route: 065
  4. ETOPOSIDE. [Suspect]
     Active Substance: ETOPOSIDE
     Indication: HODGKIN^S DISEASE
     Dosage: UNK, CYCLICAL, PART OF BEACOPP REGIMEN
     Route: 065
  5. BLEOMYCIN [Concomitant]
     Active Substance: BLEOMYCIN SULFATE
     Indication: HODGKIN^S DISEASE
     Dosage: UNK, CYCLICAL, PART OF BEACOPP REGIMEN
     Route: 065
  6. DOXORUBICIN [Suspect]
     Active Substance: DOXORUBICIN
     Indication: HODGKIN^S DISEASE
     Dosage: UNK, CYCLICAL, PART OF BEACOPP REGIMEN
     Route: 065
  7. PREDNISOLONE. [Suspect]
     Active Substance: PREDNISOLONE
     Indication: HODGKIN^S DISEASE
     Dosage: UNK, CYCLICAL, PART OF BEACOPP REGIMEN
     Route: 065

REACTIONS (3)
  - Multiple organ dysfunction syndrome [Fatal]
  - Strongyloidiasis [Fatal]
  - Hypovolaemic shock [Fatal]
